FAERS Safety Report 24532002 (Version 2)
Quarter: 2025Q3

REPORT INFORMATION
  Report Type: Report from Study
  Country: KW (occurrence: KW)
  Receive Date: 20241022
  Receipt Date: 20250828
  Transmission Date: 20251021
  Serious: Yes (Disabling, Other)
  Sender: SANDOZ
  Company Number: KW-SANDOZ-SDZ2024KW088085

PATIENT
  Age: 40 Year
  Sex: Male

DRUGS (1)
  1. HYRIMOZ [Suspect]
     Active Substance: ADALIMUMAB-ADAZ
     Indication: Ankylosing spondylitis
     Dosage: 40 MG, Q2W
     Route: 058
     Dates: start: 202407

REACTIONS (9)
  - Spinal pain [Not Recovered/Not Resolved]
  - Impaired work ability [Not Recovered/Not Resolved]
  - Gait disturbance [Not Recovered/Not Resolved]
  - Borderline personality disorder [Not Recovered/Not Resolved]
  - Suicidal ideation [Not Recovered/Not Resolved]
  - Crying [Not Recovered/Not Resolved]
  - Pain [Not Recovered/Not Resolved]
  - Product availability issue [Unknown]
  - Pain [Not Recovered/Not Resolved]

NARRATIVE: CASE EVENT DATE: 20240901
